FAERS Safety Report 25207913 (Version 3)
Quarter: 2025Q3

REPORT INFORMATION
  Report Type: Spontaneous
  Country: EU (occurrence: EU)
  Receive Date: 20250417
  Receipt Date: 20250825
  Transmission Date: 20251020
  Serious: Yes (Hospitalization)
  Sender: AMGEN
  Company Number: EU-AMGEN-FINSP2025071509

PATIENT
  Age: 72 Year
  Sex: Female

DRUGS (1)
  1. PROLIA [Suspect]
     Active Substance: DENOSUMAB
     Indication: Osteoporosis
     Route: 065

REACTIONS (10)
  - Oral pain [Unknown]
  - Glossodynia [Unknown]
  - Illness [Unknown]
  - Feeding disorder [Recovering/Resolving]
  - Impaired quality of life [Unknown]
  - Agitation [Unknown]
  - Crying [Unknown]
  - Insomnia [Unknown]
  - Weight decreased [Unknown]
  - Oropharyngeal pain [Unknown]
